FAERS Safety Report 6388966-4 (Version None)
Quarter: 2009Q4

REPORT INFORMATION
  Report Type: 
  Country: None (occurrence: None)
  Receive Date: 20091001
  Receipt Date: 20090922
  Transmission Date: 20100525
  Serious: Yes (Other)
  Sender: FDA-Public Use
  Company Number: ADR28672009

PATIENT
  Age: 61 Year
  Sex: Female

DRUGS (4)
  1. RAMIPRIL [Suspect]
     Dosage: 2.5 MG , ORAL
     Route: 048
     Dates: start: 20080506, end: 20080611
  2. BENDROFLUMETHIAZIDE [Concomitant]
  3. LEVOTHYROXINE SODIUM [Concomitant]
  4. QUININE SULPHATE (STRENGTHS UNKNOWN) [Concomitant]

REACTIONS (1)
  - HEPATITIS [None]
